FAERS Safety Report 22259098 (Version 3)
Quarter: 2023Q2

REPORT INFORMATION
  Report Type: Spontaneous
  Country: TW (occurrence: TW)
  Receive Date: 20230427
  Receipt Date: 20230602
  Transmission Date: 20230722
  Serious: Yes (Hospitalization)
  Sender: FDA-Public Use
  Company Number: TW-BRISTOL-MYERS SQUIBB COMPANY-2023-059442

PATIENT
  Age: 54 Year
  Sex: Male
  Weight: 83 kg

DRUGS (10)
  1. OPDIVO [Suspect]
     Active Substance: NIVOLUMAB
     Indication: Malignant melanoma
     Dosage: 3MG/KG
     Route: 042
     Dates: start: 20230314
  2. OPDIVO [Suspect]
     Active Substance: NIVOLUMAB
     Dates: start: 20230509
  3. OPDIVO [Suspect]
     Active Substance: NIVOLUMAB
     Dates: start: 20230406
  4. IPILIMUMAB [Suspect]
     Active Substance: IPILIMUMAB
     Indication: Malignant melanoma
     Dates: start: 20230314
  5. IPILIMUMAB [Suspect]
     Active Substance: IPILIMUMAB
     Dates: start: 20230406
  6. IPILIMUMAB [Suspect]
     Active Substance: IPILIMUMAB
     Dates: start: 20230509
  7. SINBABY [Concomitant]
     Indication: Product used for unknown indication
     Route: 061
  8. TETRACYCLINE HYDROCHLORIDE [Concomitant]
     Active Substance: TETRACYCLINE HYDROCHLORIDE
     Indication: Product used for unknown indication
     Dosage: 5GM/TUBE
     Route: 061
  9. MOXIFLOXACIN [Concomitant]
     Active Substance: MOXIFLOXACIN
     Indication: Product used for unknown indication
     Dosage: 400MG/250ML/BOT
     Route: 061
  10. PREDNISOLONE [Concomitant]
     Active Substance: PREDNISOLONE
     Indication: Product used for unknown indication
     Route: 048

REACTIONS (8)
  - Asthenia [Recovering/Resolving]
  - Somnolence [Recovering/Resolving]
  - Headache [Recovering/Resolving]
  - Immune-mediated dermatitis [Recovering/Resolving]
  - Blister [Unknown]
  - Skin wound [Unknown]
  - Off label use [Unknown]
  - Scrotal ulcer [Unknown]

NARRATIVE: CASE EVENT DATE: 20230419
